FAERS Safety Report 4613563-8 (Version None)
Quarter: 2005Q1

REPORT INFORMATION
  Report Type: 
  Country: None (occurrence: None)
  Receive Date: 20050316
  Receipt Date: 20050228
  Transmission Date: 20050727
  Serious: Yes (Hospitalization)
  Sender: FDA-Public Use
  Company Number: EWC050242831

PATIENT
  Age: 55 Year
  Sex: Female

DRUGS (6)
  1. HUMALOG [Suspect]
     Indication: DIABETES MELLITUS NON-INSULIN-DEPENDENT
     Dates: start: 20041222
  2. LEVEMIR (INSULIN DETEMIR) [Concomitant]
  3. METFIN (METFORMIN HYDROCHLORIDE) [Concomitant]
  4. CALCIMAGON (CALCIUM CARBONATE) [Concomitant]
  5. ASPIRINE (ACDTYLSALICYLIC ACID) [Concomitant]
  6. PRAVASTATIN SODIUM [Concomitant]

REACTIONS (6)
  - DEVICE FAILURE [None]
  - HYPERGLYCAEMIA [None]
  - HYPOGLYCAEMIA [None]
  - MEDICATION ERROR [None]
  - PHARMACEUTICAL PRODUCT COMPLAINT [None]
  - TREATMENT NONCOMPLIANCE [None]
